FAERS Safety Report 8220227-0 (Version None)
Quarter: 2012Q1

REPORT INFORMATION
  Report Type: 
  Country: None (occurrence: None)
  Receive Date: 20120320
  Receipt Date: 20120308
  Transmission Date: 20120608
  Serious: Yes (Hospitalization)
  Sender: FDA-Public Use
  Company Number: US-BAYER-2011-085321

PATIENT
  Age: 23 Year
  Sex: Female
  Weight: 90 kg

DRUGS (4)
  1. YASMIN [Suspect]
     Dosage: UNK
     Dates: start: 20061001, end: 20070101
  2. PREVACID [Concomitant]
     Dosage: 30 MG, UNK
     Dates: start: 20071002
  3. KLONOPIN [Concomitant]
     Dosage: 1 MG, UNK
     Dates: start: 20071002
  4. ZOLOFT [Concomitant]

REACTIONS (3)
  - PAIN [None]
  - CHOLECYSTITIS ACUTE [None]
  - PANCREATITIS [None]
